FAERS Safety Report 5315235-3 (Version None)
Quarter: 2007Q2

REPORT INFORMATION
  Report Type: 
  Country: None (occurrence: None)
  Receive Date: 20070502
  Receipt Date: 20070420
  Transmission Date: 20071010
  Serious: Yes (Other)
  Sender: FDA-Public Use
  Company Number: JP-PFIZER INC-2007029101

PATIENT
  Age: 3 Year
  Sex: Male
  Weight: 14 kg

DRUGS (4)
  1. GABAPEN [Suspect]
     Indication: EPILEPSY
     Dosage: DAILY DOSE:700MG
     Route: 048
  2. DEPAKENE [Concomitant]
     Route: 048
     Dates: start: 20060508
  3. LEVOCARNITINE [Concomitant]
     Route: 048
  4. PRIMIDONE [Concomitant]
     Route: 048

REACTIONS (5)
  - AGITATION [None]
  - CONVULSION [None]
  - INSOMNIA [None]
  - MOROSE [None]
  - PYREXIA [None]
